FAERS Safety Report 4935141-3 (Version None)
Quarter: 2006Q1

REPORT INFORMATION
  Report Type: 
  Country: None (occurrence: None)
  Receive Date: 20060306
  Receipt Date: 20060306
  Transmission Date: 20060701
  Serious: Yes (Hospitalization)
  Sender: FDA-Public Use
  Company Number: None

PATIENT
  Age: 43 Year
  Sex: Male
  Weight: 108.8633 kg

DRUGS (1)
  1. DEPAKOTE [Suspect]
     Indication: ANXIETY
     Dosage: 500MG  QHS PO
     Route: 048
     Dates: start: 20050401, end: 20050409

REACTIONS (1)
  - DIZZINESS [None]
